FAERS Safety Report 4307247-3 (Version None)
Quarter: 2004Q1

REPORT INFORMATION
  Report Type: 
  Country: None (occurrence: None)
  Receive Date: 20040226
  Receipt Date: 20040218
  Transmission Date: 20041129
  Serious: Yes (Death)
  Sender: FDA-Public Use
  Company Number: USA-2003-0011297

PATIENT
  Age: 69 Year
  Sex: Male

DRUGS (4)
  1. MORPHINE SULFATE [Suspect]
  2. RANITIDINE [Suspect]
  3. TEMAZEPAM [Suspect]
  4. SERTRALINE (SERTRALINE) [Suspect]

REACTIONS (10)
  - ARTERIOSCLEROSIS [None]
  - ATHEROSCLEROSIS [None]
  - BASAL GANGLION DEGENERATION [None]
  - CARDIOMEGALY [None]
  - CHRONIC OBSTRUCTIVE AIRWAYS DISEASE [None]
  - COMA [None]
  - LEG AMPUTATION [None]
  - MYOCARDIAL FIBROSIS [None]
  - OVERDOSE [None]
  - SCAR [None]
